FAERS Safety Report 18382485 (Version 1)
Quarter: 2020Q4

REPORT INFORMATION
  Report Type: Spontaneous
  Country: US (occurrence: US)
  Receive Date: 20201014
  Receipt Date: 20201014
  Transmission Date: 20210114
  Serious: No
  Sender: FDA-Public Use
  Company Number: US-GW PHARMA-202010USGW03485

PATIENT

DRUGS (2)
  1. EPIDIOLEX [Suspect]
     Active Substance: CANNABIDIOL
     Indication: LENNOX-GASTAUT SYNDROME
     Dosage: UNK
     Route: 048
     Dates: end: 2020
  2. EPIDIOLEX [Suspect]
     Active Substance: CANNABIDIOL
     Dosage: 100 MILLIGRAM, BID (UNKNOWN DATE IN 2020 IT WAS PRESCRIBED AT 1.2 ML BID, THEN ON 03 MAR 2020 IT WAS
     Route: 048
     Dates: start: 2020

REACTIONS (2)
  - Incorrect dose administered [Unknown]
  - Somnolence [Not Recovered/Not Resolved]

NARRATIVE: CASE EVENT DATE: 2020
